FAERS Safety Report 18682387 (Version 1)
Quarter: 2020Q4

REPORT INFORMATION
  Report Type: Spontaneous
  Country: GB (occurrence: GB)
  Receive Date: 20201229
  Receipt Date: 20201229
  Transmission Date: 20210114
  Serious: Yes (Hospitalization)
  Sender: FDA-Public Use
  Company Number: GB-ACCORD-212225

PATIENT
  Age: 85 Year
  Sex: Female

DRUGS (9)
  1. BIMATOPROST. [Concomitant]
     Active Substance: BIMATOPROST
  2. CLOPIDOGREL [Concomitant]
     Active Substance: CLOPIDOGREL BISULFATE
  3. DEXAMETHASONE. [Concomitant]
     Active Substance: DEXAMETHASONE
  4. LISINOPRIL. [Concomitant]
     Active Substance: LISINOPRIL
  5. TIMOLOL. [Concomitant]
     Active Substance: TIMOLOL
  6. ALLOPURINOL. [Suspect]
     Active Substance: ALLOPURINOL
     Indication: PRODUCT USED FOR UNKNOWN INDICATION
     Route: 048
     Dates: end: 202012
  7. LENALIDOMIDE [Suspect]
     Active Substance: LENALIDOMIDE
     Indication: PLASMA CELL MYELOMA
     Route: 048
     Dates: start: 202010, end: 202012
  8. ATORVASTATIN [Concomitant]
     Active Substance: ATORVASTATIN
  9. BENDROFLUMETHIAZIDE [Concomitant]
     Active Substance: BENDROFLUMETHIAZIDE

REACTIONS (4)
  - Skin plaque [Unknown]
  - Butterfly rash [Unknown]
  - Erythema [Unknown]
  - Skin reaction [Recovering/Resolving]
